FAERS Safety Report 9029477 (Version 3)
Quarter: 2013Q1

REPORT INFORMATION
  Report Type: Spontaneous
  Country: US (occurrence: US)
  Receive Date: 20130125
  Receipt Date: 20130325
  Transmission Date: 20140127
  Serious: Yes (Life-Threatening, Hospitalization, Other)
  Sender: FDA-Public Use
  Company Number: US-009507513-1301USA009542

PATIENT
  Sex: Male

DRUGS (2)
  1. DULERA [Suspect]
     Indication: ASTHMA
     Dosage: 2 INHALATIONS, BID
     Route: 055
     Dates: start: 20121224
  2. ALBUTEROL [Concomitant]
     Dosage: UNK

REACTIONS (6)
  - Asthma [Unknown]
  - Dizziness [Unknown]
  - Endotracheal intubation [Recovered/Resolved]
  - Respiratory distress [Recovered/Resolved]
  - Dyspnoea [Unknown]
  - Adverse event [Recovering/Resolving]
